FAERS Safety Report 7305453-7 (Version None)
Quarter: 2011Q1

REPORT INFORMATION
  Report Type: 
  Country: None (occurrence: None)
  Receive Date: 20110222
  Receipt Date: 20110210
  Transmission Date: 20110831
  Serious: Yes (Hospitalization)
  Sender: FDA-Public Use
  Company Number: US-ELI_LILLY_AND_COMPANY-US201102003475

PATIENT
  Sex: Female

DRUGS (5)
  1. FORTEO [Suspect]
     Indication: OSTEOPOROSIS
     Dosage: 20 UG, 3/W
     Dates: end: 20110127
  2. HYDROCHLOROTHIAZIDE [Concomitant]
  3. LISINOPRIL [Concomitant]
  4. LIPITOR [Concomitant]
  5. MULTIVITAMIN [Concomitant]

REACTIONS (9)
  - DYSPNOEA [None]
  - ILL-DEFINED DISORDER [None]
  - CHEST DISCOMFORT [None]
  - INAPPROPRIATE SCHEDULE OF DRUG ADMINISTRATION [None]
  - MUSCULAR WEAKNESS [None]
  - FATIGUE [None]
  - GAIT DISTURBANCE [None]
  - ASTHENIA [None]
  - DIZZINESS [None]
